FAERS Safety Report 5334385-9 (Version None)
Quarter: 2007Q2

REPORT INFORMATION
  Report Type: 
  Country: None (occurrence: None)
  Receive Date: 20070525
  Receipt Date: 20070517
  Transmission Date: 20071010
  Serious: Yes (Hospitalization)
  Sender: FDA-Public Use
  Company Number: JP-BRISTOL-MYERS SQUIBB COMPANY-13755822

PATIENT
  Age: 29 Year
  Sex: Female

DRUGS (11)
  1. ENDOXAN [Suspect]
     Indication: SYSTEMIC LUPUS ERYTHEMATOSUS
     Route: 041
     Dates: start: 20070313, end: 20070313
  2. LIVALO [Suspect]
     Indication: SYSTEMIC LUPUS ERYTHEMATOSUS
     Route: 048
     Dates: start: 20070222, end: 20070407
  3. TRICOR [Concomitant]
     Indication: SYSTEMIC LUPUS ERYTHEMATOSUS
     Route: 048
     Dates: start: 20070226, end: 20070407
  4. GASTER [Concomitant]
     Dates: start: 20070222, end: 20070407
  5. PREDONINE [Concomitant]
     Route: 048
     Dates: start: 20070227
  6. EPADEL [Concomitant]
     Dates: start: 20070226, end: 20070407
  7. RENIVACE [Concomitant]
     Dates: start: 20070306, end: 20070407
  8. COMELIAN [Concomitant]
     Dates: start: 20070306, end: 20070407
  9. RIZE [Concomitant]
     Dates: start: 20070222
  10. DESYRL [Concomitant]
     Dates: start: 20070222
  11. PAXIL [Concomitant]
     Dates: start: 20070222

REACTIONS (3)
  - HYPERLIPIDAEMIA [None]
  - JAUNDICE [None]
  - LIVER DISORDER [None]
